FAERS Safety Report 8192798-4 (Version None)
Quarter: 2012Q1

REPORT INFORMATION
  Report Type: 
  Country: None (occurrence: None)
  Receive Date: 20120308
  Receipt Date: 20120304
  Transmission Date: 20120608
  Serious: No
  Sender: FDA-Public Use
  Company Number: US-PFIZER INC-2012057555

PATIENT
  Sex: Female

DRUGS (3)
  1. VENLAFAXINE HCL [Suspect]
     Dosage: UNK
     Dates: start: 20000101
  2. EFFEXOR XR [Suspect]
     Dosage: UNK
  3. PRISTIQ [Suspect]
     Dosage: UNK
     Dates: start: 20120201

REACTIONS (5)
  - SOMNOLENCE [None]
  - NIGHTMARE [None]
  - HOSTILITY [None]
  - CRYING [None]
  - ABNORMAL DREAMS [None]
